FAERS Safety Report 24925720 (Version 1)
Quarter: 2025Q1

REPORT INFORMATION
  Report Type: Spontaneous
  Country: FR (occurrence: FR)
  Receive Date: 20250204
  Receipt Date: 20250204
  Transmission Date: 20250409
  Serious: Yes (Other)
  Sender: BEIGENE
  Company Number: FR-BEIGENE-BGN-2025-001782

PATIENT
  Age: 80 Year

DRUGS (2)
  1. BRUKINSA [Suspect]
     Active Substance: ZANUBRUTINIB
     Indication: Marginal zone lymphoma
  2. BRUKINSA [Suspect]
     Active Substance: ZANUBRUTINIB

REACTIONS (3)
  - Haematotoxicity [Unknown]
  - Transient acantholytic dermatosis [Unknown]
  - Rash pustular [Unknown]
